FAERS Safety Report 5535554-5 (Version None)
Quarter: 2007Q4

REPORT INFORMATION
  Report Type: 
  Country: None (occurrence: None)
  Receive Date: 20071206
  Receipt Date: 20071128
  Transmission Date: 20080405
  Serious: Yes (Hospitalization, Other)
  Sender: FDA-Public Use
  Company Number: AU-ASTRAZENECA-2007AP06924

PATIENT
  Sex: Male
  Weight: 85 kg

DRUGS (6)
  1. SEROQUEL [Suspect]
     Route: 048
     Dates: start: 20060608, end: 20070927
  2. OLANZAPINE [Concomitant]
  3. ABILIFY [Concomitant]
  4. RISPERDAL [Concomitant]
  5. HALOPERIDOL [Concomitant]
     Route: 048
     Dates: start: 19870101
  6. STELAZINE [Concomitant]
     Route: 048
     Dates: start: 19870101

REACTIONS (2)
  - PANIC ATTACK [None]
  - TACHYCARDIA [None]
